FAERS Safety Report 21194418 (Version 1)
Quarter: 2022Q3

REPORT INFORMATION
  Report Type: Spontaneous
  Country: CA (occurrence: CA)
  Receive Date: 20220810
  Receipt Date: 20220810
  Transmission Date: 20221027
  Serious: Yes (Hospitalization, Other)
  Sender: FDA-Public Use
  Company Number: None

PATIENT
  Age: 20 Year
  Sex: Male

DRUGS (2)
  1. METHOTREXATE [Suspect]
     Active Substance: METHOTREXATE
     Indication: Product used for unknown indication
     Route: 058
  2. ZOFRAN [Concomitant]
     Active Substance: ONDANSETRON HYDROCHLORIDE

REACTIONS (21)
  - Abdominal pain [Unknown]
  - Abscess intestinal [Unknown]
  - Anal inflammation [Unknown]
  - Chronic gastritis [Unknown]
  - Colitis [Unknown]
  - Decreased appetite [Unknown]
  - Drug intolerance [Unknown]
  - Duodenal ulcer [Unknown]
  - Duodenitis [Unknown]
  - Faeces soft [Unknown]
  - Gastric ulcer [Unknown]
  - Gastrointestinal mucosal disorder [Unknown]
  - Granuloma [Unknown]
  - Large intestinal ulcer [Unknown]
  - Lymphocytic oesophagitis [Unknown]
  - Malaise [Unknown]
  - Nausea [Unknown]
  - Oesophageal ulcer [Unknown]
  - Perforation [Unknown]
  - Rectal haemorrhage [Unknown]
  - Rectal ulcer [Unknown]
